FAERS Safety Report 7722989-5 (Version None)
Quarter: 2011Q3

REPORT INFORMATION
  Report Type: 
  Country: None (occurrence: None)
  Receive Date: 20110901
  Receipt Date: 20110829
  Transmission Date: 20111222
  Serious: Yes (Hospitalization, Other)
  Sender: FDA-Public Use
  Company Number: US-AMGEN-USASP2011044306

PATIENT
  Age: 21 Year
  Sex: Male
  Weight: 112 kg

DRUGS (4)
  1. PENICILLIN V POTASSIUM [Concomitant]
  2. FOLIC ACID [Concomitant]
  3. NPLATE [Suspect]
     Indication: EVANS SYNDROME
  4. NPLATE [Suspect]
     Indication: IDIOPATHIC THROMBOCYTOPENIC PURPURA
     Dates: start: 20110501

REACTIONS (2)
  - GASTRITIS [None]
  - PLATELET COUNT DECREASED [None]
